FAERS Safety Report 7466475-9 (Version None)
Quarter: 2011Q2

REPORT INFORMATION
  Report Type: 
  Country: None (occurrence: None)
  Receive Date: 20110509
  Receipt Date: 20100820
  Transmission Date: 20111010
  Serious: No
  Sender: FDA-Public Use
  Company Number: US-ALEXION-A201001043

PATIENT
  Sex: Male

DRUGS (9)
  1. VITAMIN B12                        /00056201/ [Concomitant]
     Dosage: UNK
  2. SOLIRIS [Suspect]
     Indication: PAROXYSMAL NOCTURNAL HAEMOGLOBINURIA
     Dosage: 900 MG, Q2W
     Route: 042
  3. NORVASC [Concomitant]
     Indication: HYPERTENSION
     Dosage: UNK
  4. ACEON                              /00790702/ [Concomitant]
     Indication: HYPERTENSION
     Dosage: UNK
  5. RESTORIL                           /00393701/ [Concomitant]
     Indication: SLEEP DISORDER
     Dosage: UNK
  6. CALCIUM [Concomitant]
     Dosage: UNK
  7. PAXIL [Concomitant]
     Indication: ANXIETY
     Dosage: UNK
  8. PREVACID [Concomitant]
     Dosage: UNK
  9. FOLIC ACID [Concomitant]
     Indication: PAROXYSMAL NOCTURNAL HAEMOGLOBINURIA
     Dosage: UNK

REACTIONS (2)
  - EYE PAIN [None]
  - OCULAR HYPERAEMIA [None]
